FAERS Safety Report 6425024-4 (Version None)
Quarter: 2009Q4

REPORT INFORMATION
  Report Type: 
  Country: None (occurrence: None)
  Receive Date: 20091030
  Receipt Date: 20091030
  Transmission Date: 20100525
  Serious: Yes (Disabling)
  Sender: FDA-Public Use
  Company Number: None

PATIENT
  Sex: Male
  Weight: 72.5755 kg

DRUGS (2)
  1. REGLAN [Suspect]
     Indication: IMPAIRED GASTRIC EMPTYING
     Dosage: 0.5 MILLIGRAMS 3X DAILY ORAL
     Route: 048
  2. REGLAN [Suspect]
     Indication: NAUSEA
     Dosage: 0.5 MILLIGRAMS 3X DAILY ORAL
     Route: 048

REACTIONS (1)
  - TARDIVE DYSKINESIA [None]
